FAERS Safety Report 8990325 (Version 2)
Quarter: 2014Q1

REPORT INFORMATION
  Report Type: Spontaneous
  Country: US (occurrence: US)
  Receive Date: 20121228
  Receipt Date: 20140106
  Transmission Date: 20141002
  Serious: Yes (Hospitalization)
  Sender: FDA-Public Use
  Company Number: US-B.I. PHARMACEUTICALS,INC./RIDGEFIELD-2012-BI-04341BP

PATIENT
  Sex: Female
  Weight: 83.91 kg

DRUGS (7)
  1. PRADAXA [Suspect]
     Indication: ANTICOAGULANT THERAPY
     Dosage: 300 MG
     Dates: start: 20120219, end: 20120221
  2. DIGOXIN [Concomitant]
     Dosage: 125 MCG
  3. FENOFIBRATE [Concomitant]
     Dosage: 160 MG
  4. GABAPENTIN [Concomitant]
     Dosage: 200 MG
  5. SOTALOL [Concomitant]
     Dosage: 320 MG
     Route: 048
  6. DYAZIDE [Concomitant]
  7. FOLIC ACID [Concomitant]
     Dosage: 1 MG

REACTIONS (2)
  - Gastrointestinal haemorrhage [Unknown]
  - Anaemia [Unknown]
